FAERS Safety Report 4918015-3 (Version None)
Quarter: 2006Q1

REPORT INFORMATION
  Report Type: 
  Country: None (occurrence: None)
  Receive Date: 20060221
  Receipt Date: 20050930
  Transmission Date: 20060701
  Serious: Yes (Death, Hospitalization)
  Sender: FDA-Public Use
  Company Number: US-MERCK-0510USA00820

PATIENT
  Age: 78 Year
  Sex: Female
  Weight: 85 kg

DRUGS (4)
  1. VIOXX [Suspect]
     Indication: ARTHRITIS
     Route: 048
     Dates: start: 19990101, end: 20030101
  2. VIOXX [Suspect]
     Route: 048
     Dates: start: 19990101, end: 20030101
  3. VIOXX [Suspect]
     Indication: MYALGIA
     Route: 048
     Dates: start: 19990101, end: 20030101
  4. VIOXX [Suspect]
     Route: 048
     Dates: start: 19990101, end: 20030101

REACTIONS (14)
  - ACUTE MYOCARDIAL INFARCTION [None]
  - ANGIOPATHY [None]
  - ARRHYTHMIA [None]
  - ARTHRITIS [None]
  - CARDIOVASCULAR DISORDER [None]
  - CEREBROVASCULAR ACCIDENT [None]
  - CHEST PAIN [None]
  - DEATH [None]
  - MYALGIA [None]
  - ORGAN FAILURE [None]
  - PULMONARY EMBOLISM [None]
  - RESPIRATORY FAILURE [None]
  - TENDONITIS [None]
  - THROMBOSIS [None]
